FAERS Safety Report 11684042 (Version 1)
Quarter: 2015Q4

REPORT INFORMATION
  Report Type: Other
  Country: CH (occurrence: CH)
  Receive Date: 20151029
  Receipt Date: 20151029
  Transmission Date: 20160304
  Serious: Yes (Other)
  Sender: FDA-Public Use
  Company Number: CH-NSR_02267_2015

PATIENT
  Sex: Male

DRUGS (2)
  1. BACLOFEN. [Suspect]
     Active Substance: BACLOFEN
     Indication: ALCOHOLISM
     Dosage: 210 MG PER DAY
  2. BACLOFEN. [Suspect]
     Active Substance: BACLOFEN
     Dosage: STARTING DOSE 5 MG, TID, EVERY THREE DAYS

REACTIONS (1)
  - Toxicity to various agents [Unknown]
